FAERS Safety Report 5314140-6 (Version None)
Quarter: 2007Q2

REPORT INFORMATION
  Report Type: 
  Country: None (occurrence: None)
  Receive Date: 20070425
  Receipt Date: 20070411
  Transmission Date: 20071010
  Serious: Yes (Other)
  Sender: FDA-Public Use
  Company Number: 100#03#2007-01240

PATIENT
  Age: 24 Year
  Sex: Female

DRUGS (3)
  1. TRAMADOL HCL [Suspect]
     Indication: BACK PAIN
     Dosage: 200 MG (1 DAYS) ORAL
     Route: 048
     Dates: start: 20070202, end: 20070320
  2. BECLOMETHASONE (BECLOMETHASONE DIPROPIONATE) (BECLOMETHASONE) [Concomitant]
  3. SALBUTAMOL (SALBUTAMOL) (SALBUTAMOL) [Concomitant]

REACTIONS (4)
  - ANXIETY [None]
  - DYSKINESIA [None]
  - INSOMNIA [None]
  - MYALGIA [None]
